FAERS Safety Report 9105471 (Version 1)
Quarter: 2013Q1

REPORT INFORMATION
  Report Type: Spontaneous
  Country: US (occurrence: US)
  Receive Date: 20130220
  Receipt Date: 20130220
  Transmission Date: 20140127
  Serious: Yes (Other)
  Sender: FDA-Public Use
  Company Number: US-PFIZER INC-2013061815

PATIENT
  Age: 65 Year
  Sex: Male
  Weight: 95.2 kg

DRUGS (1)
  1. CELEBREX [Suspect]
     Dosage: 400 MG, 2X/DAY

REACTIONS (1)
  - Renal impairment [Unknown]
